FAERS Safety Report 20181964 (Version 1)
Quarter: 2021Q4

REPORT INFORMATION
  Report Type: Spontaneous
  Country: US (occurrence: US)
  Receive Date: 20211214
  Receipt Date: 20211214
  Transmission Date: 20220303
  Serious: Yes (Death, Other)
  Sender: FDA-Public Use
  Company Number: US-GILEAD-2021-0560357

PATIENT
  Sex: Female

DRUGS (1)
  1. VEKLURY [Suspect]
     Active Substance: REMDESIVIR
     Indication: Coronavirus infection
     Route: 065

REACTIONS (2)
  - Haemorrhagic stroke [Fatal]
  - Swelling face [Not Recovered/Not Resolved]
